APPROVED DRUG PRODUCT: APRACLONIDINE HYDROCHLORIDE
Active Ingredient: APRACLONIDINE HYDROCHLORIDE
Strength: EQ 0.5% BASE
Dosage Form/Route: SOLUTION/DROPS;OPHTHALMIC
Application: A077764 | Product #001 | TE Code: AT
Applicant: RISING PHARMA HOLDINGS INC
Approved: Mar 12, 2009 | RLD: No | RS: No | Type: RX